FAERS Safety Report 7084588-0 (Version None)
Quarter: 2010Q4

REPORT INFORMATION
  Report Type: 
  Country: None (occurrence: None)
  Receive Date: 20101104
  Receipt Date: 20101021
  Transmission Date: 20110411
  Serious: Yes (Death, Other)
  Sender: FDA-Public Use
  Company Number: US-AMGEN-USASP2010000968

PATIENT

DRUGS (1)
  1. NPLATE [Suspect]
     Dates: start: 20100426, end: 20100503

REACTIONS (3)
  - HAEMORRHAGE INTRACRANIAL [None]
  - KABUKI MAKE-UP SYNDROME [None]
  - PANCYTOPENIA [None]
